FAERS Safety Report 9775498 (Version 2)
Quarter: 2014Q1

REPORT INFORMATION
  Report Type: Spontaneous
  Country: DE (occurrence: None)
  Receive Date: 20131217
  Receipt Date: 20140226
  Transmission Date: 20141002
  Serious: Yes (Disabling)
  Sender: FDA-Public Use
  Company Number: AUR-APL-2013-10511

PATIENT
  Age: 47 Year
  Sex: Male
  Weight: 90 kg

DRUGS (6)
  1. SIMVASTATIN (SIMVASTATIN) [Suspect]
     Indication: PRODUCT USED FOR UNKNOWN INDICATION
     Dosage: 80 MG (80 MG, 1 IN 1 D), ORAL
     Route: 048
     Dates: start: 2007
  2. EZETROL [Suspect]
     Indication: PRODUCT USED FOR UNKNOWN INDICATION
     Dosage: 10MG (10MG, 1 IN 1D, ORAL
     Route: 048
     Dates: start: 200909
  3. THYROXINE (LEVOTHYROXINE SODIUM) [Concomitant]
  4. OMACOR [Concomitant]
  5. ASS (ACETYLSALICYLIC ACID) [Concomitant]
  6. ATORVASTATIN [Concomitant]

REACTIONS (4)
  - Fasciitis [None]
  - Tendon pain [None]
  - Blood cholesterol increased [None]
  - Tendonitis [None]
